FAERS Safety Report 6022766-X (Version None)
Quarter: 2008Q4

REPORT INFORMATION
  Report Type: 
  Country: None (occurrence: None)
  Receive Date: 20081230
  Receipt Date: 20081229
  Transmission Date: 20090506
  Serious: Yes (Death)
  Sender: FDA-Public Use
  Company Number: US-BAYER-200834611NA

PATIENT
  Sex: Female

DRUGS (2)
  1. AVELOX [Suspect]
     Indication: BRONCHITIS
     Dosage: TOTAL DAILY DOSE: 400 MG  UNIT DOSE: 400 MG
     Dates: start: 20080901, end: 20080901
  2. AVELOX [Suspect]
     Dates: start: 20080601

REACTIONS (4)
  - ANAPHYLACTIC REACTION [None]
  - RESPIRATORY ARREST [None]
  - SWOLLEN TONGUE [None]
  - SYNCOPE [None]
